FAERS Safety Report 5055829-6 (Version None)
Quarter: 2006Q3

REPORT INFORMATION
  Report Type: 
  Country: None (occurrence: None)
  Receive Date: 20060717
  Receipt Date: 20060717
  Transmission Date: 20061208
  Serious: Yes (Disabling)
  Sender: FDA-Public Use
  Company Number: None

PATIENT

DRUGS (1)
  1. LEVAQUIN [Suspect]
     Indication: SINUSITIS
     Dosage: 500 MG DAILY PO [ONE DOSE]
     Route: 048
     Dates: start: 20060531, end: 20060531

REACTIONS (5)
  - DYSPNOEA [None]
  - FLUSHING [None]
  - NASOPHARYNGEAL DISORDER [None]
  - PRURITUS [None]
  - WRONG DRUG ADMINISTERED [None]
